FAERS Safety Report 10534678 (Version 7)
Quarter: 2015Q4

REPORT INFORMATION
  Report Type: Spontaneous
  Country: US (occurrence: US)
  Receive Date: 20141022
  Receipt Date: 20151210
  Transmission Date: 20160304
  Serious: Yes (Hospitalization, Disabling, Other)
  Sender: FDA-Public Use
  Company Number: US-009507513-1410USA011133

PATIENT
  Sex: Female
  Weight: 92.97 kg

DRUGS (3)
  1. NUVARING [Suspect]
     Active Substance: ETHINYL ESTRADIOL\ETONOGESTREL
     Indication: MENSTRUATION IRREGULAR
     Dosage: 3 WEEKS IN, ONE WEEK OUT
     Route: 067
     Dates: start: 20080501, end: 20140116
  2. NUVARING [Suspect]
     Active Substance: ETHINYL ESTRADIOL\ETONOGESTREL
     Indication: DYSMENORRHOEA
  3. NUVARING [Suspect]
     Active Substance: ETHINYL ESTRADIOL\ETONOGESTREL
     Indication: CONTRACEPTION

REACTIONS (12)
  - Urinary tract infection [Unknown]
  - Depression [Unknown]
  - Pharyngitis [Unknown]
  - Off label use [Unknown]
  - Tonsillectomy [Unknown]
  - Mood altered [Recovering/Resolving]
  - Meniscus operation [Unknown]
  - Vocal cord polypectomy [Unknown]
  - Benign neoplasm [Unknown]
  - Cerebrovascular accident [Recovering/Resolving]
  - Dermatitis contact [Unknown]
  - Knee operation [Unknown]

NARRATIVE: CASE EVENT DATE: 2009
